FAERS Safety Report 23789628 (Version 1)
Quarter: 2024Q2

REPORT INFORMATION
  Report Type: Spontaneous
  Country: US (occurrence: US)
  Receive Date: 20240426
  Receipt Date: 20240426
  Transmission Date: 20240716
  Serious: No
  Sender: FDA-Public Use
  Company Number: US-SEATTLE GENETICS-2023SGN11168

PATIENT

DRUGS (1)
  1. TUKYSA [Suspect]
     Active Substance: TUCATINIB
     Indication: Product used for unknown indication
     Dosage: 150 MG
     Route: 065

REACTIONS (1)
  - Product temperature excursion issue [Recovered/Resolved]

NARRATIVE: CASE EVENT DATE: 20231006
